FAERS Safety Report 6686450-1 (Version None)
Quarter: 2010Q2

REPORT INFORMATION
  Report Type: 
  Country: None (occurrence: None)
  Receive Date: 20100419
  Receipt Date: 20100412
  Transmission Date: 20101027
  Serious: Yes (Hospitalization)
  Sender: FDA-Public Use
  Company Number: B0648053A

PATIENT
  Age: 26 Year
  Sex: Male
  Weight: 85 kg

DRUGS (2)
  1. CLAVAMOX [Suspect]
     Indication: OROPHARYNGEAL PAIN
     Route: 048
  2. STREPSILS [Concomitant]
     Indication: OROPHARYNGEAL PAIN

REACTIONS (6)
  - ANGIOEDEMA [None]
  - EPSTEIN-BARR VIRUS INFECTION [None]
  - INFECTIOUS MONONUCLEOSIS [None]
  - PURPURA [None]
  - RASH GENERALISED [None]
  - RASH MACULO-PAPULAR [None]
